FAERS Safety Report 21324012 (Version 1)
Quarter: 2022Q3

REPORT INFORMATION
  Report Type: Spontaneous
  Country: US (occurrence: None)
  Receive Date: 20220910
  Receipt Date: 20220910
  Transmission Date: 20221026
  Serious: No
  Sender: FDA-Public Use
  Company Number: None

PATIENT
  Age: 28 Year
  Sex: Female
  Weight: 50.85 kg

DRUGS (5)
  1. BUPROPION HYDROCHLORIDE [Suspect]
     Active Substance: BUPROPION HYDROCHLORIDE
     Indication: Depression
     Dosage: OTHER QUANTITY : 2 TABLET(S);?
     Route: 048
     Dates: start: 20181029
  2. DIETARY SUPPLEMENT [Concomitant]
     Active Substance: DIETARY SUPPLEMENT
  3. PROTEIN POWDER [Concomitant]
  4. COLON BROOM [Concomitant]
  5. VITAMINS [Concomitant]
     Active Substance: VITAMINS

REACTIONS (3)
  - Acne [None]
  - Drug ineffective [None]
  - Hypersensitivity [None]

NARRATIVE: CASE EVENT DATE: 20220826
